FAERS Safety Report 20826932 (Version 4)
Quarter: 2023Q2

REPORT INFORMATION
  Report Type: Spontaneous
  Country: CA (occurrence: CA)
  Receive Date: 20220513
  Receipt Date: 20230418
  Transmission Date: 20230722
  Serious: Yes (Death, Hospitalization, Other)
  Sender: FDA-Public Use
  Company Number: CA-SAMSUNG BIOEPIS-SB-2022-11216

PATIENT
  Age: 86 Year
  Sex: Female
  Weight: 36 kg

DRUGS (1)
  1. INFLIXIMAB [Suspect]
     Active Substance: INFLIXIMAB
     Indication: Rheumatoid arthritis
     Route: 042

REACTIONS (6)
  - Death [Fatal]
  - Rheumatoid arthritis [Fatal]
  - Weight decreased [Fatal]
  - Weight increased [Fatal]
  - Inappropriate schedule of product administration [Fatal]
  - Off label use [Fatal]
